FAERS Safety Report 8816273 (Version 1)
Quarter: 2012Q4

REPORT INFORMATION
  Report Type: Spontaneous
  Country: US (occurrence: None)
  Receive Date: 20120928
  Receipt Date: 20120928
  Transmission Date: 20130627
  Serious: Yes (Other)
  Sender: FDA-Public Use
  Company Number: None

PATIENT
  Weight: 61.69 kg

DRUGS (3)
  1. PRAVASTATIN [Suspect]
     Indication: CHOLESTEROL
     Dosage: 40mg/20mg 1 tablet per day by mouth
     Route: 048
     Dates: start: 20120512, end: 20120512
  2. PRAVASTATIN [Suspect]
     Indication: CHOLESTEROL
     Route: 048
  3. LOVASTATIN [Suspect]
     Dosage: 40 mg 1 per day by mouth
     Dates: start: 201208

REACTIONS (2)
  - Abdominal discomfort [None]
  - Skin odour abnormal [None]
